FAERS Safety Report 20821460 (Version 13)
Quarter: 2025Q4

REPORT INFORMATION
  Report Type: Spontaneous
  Country: US (occurrence: US)
  Receive Date: 20220512
  Receipt Date: 20251126
  Transmission Date: 20260117
  Serious: Yes (Other)
  Sender: PFIZER
  Company Number: US-PFIZER INC-2020279375

PATIENT
  Age: 66 Year
  Sex: Female

DRUGS (5)
  1. XELJANZ XR [Suspect]
     Active Substance: TOFACITINIB CITRATE
     Indication: Arthritis
     Dosage: 11 MG
     Dates: end: 202304
  2. XELJANZ XR [Suspect]
     Active Substance: TOFACITINIB CITRATE
     Indication: Rheumatoid arthritis
     Dosage: 11 MG
  3. TYLENOL [Concomitant]
     Active Substance: ACETAMINOPHEN
     Dosage: UNK
  4. PREDNISONE [Concomitant]
     Active Substance: PREDNISONE
     Indication: Pain
     Dosage: 10 MG
  5. PYRAZOLE [Concomitant]
     Dosage: UNK

REACTIONS (31)
  - Type 2 diabetes mellitus [Unknown]
  - Suicidal ideation [Unknown]
  - Pain [Unknown]
  - Blood glucose increased [Unknown]
  - Foot operation [Unknown]
  - Drug ineffective [Unknown]
  - Somnolence [Unknown]
  - Blood pressure increased [Unknown]
  - Joint instability [Not Recovered/Not Resolved]
  - Musculoskeletal discomfort [Unknown]
  - Illness [Not Recovered/Not Resolved]
  - Joint range of motion decreased [Unknown]
  - Vertigo [Unknown]
  - COVID-19 [Recovered/Resolved]
  - Arthralgia [Not Recovered/Not Resolved]
  - Pain in extremity [Not Recovered/Not Resolved]
  - Osteopenia [Unknown]
  - Herpes zoster [Unknown]
  - Fungal skin infection [Unknown]
  - Stress [Unknown]
  - Gait disturbance [Not Recovered/Not Resolved]
  - Muscular weakness [Unknown]
  - Bone density decreased [Unknown]
  - Dizziness [Not Recovered/Not Resolved]
  - Fall [Not Recovered/Not Resolved]
  - Gait inability [Not Recovered/Not Resolved]
  - Pyrexia [Unknown]
  - Insomnia [Unknown]
  - Condition aggravated [Not Recovered/Not Resolved]
  - Tachyphrenia [Unknown]
  - Malaise [Unknown]

NARRATIVE: CASE EVENT DATE: 20230101
